FAERS Safety Report 8478501-9 (Version None)
Quarter: 2012Q2

REPORT INFORMATION
  Report Type: 
  Country: None (occurrence: None)
  Receive Date: 20120629
  Receipt Date: 20120620
  Transmission Date: 20120825
  Serious: Yes (Other)
  Sender: FDA-Public Use
  Company Number: DE-ASTELLAS-2012US004897

PATIENT
  Sex: Male

DRUGS (1)
  1. TARCEVA [Suspect]
     Indication: BRONCHIAL CARCINOMA
     Dosage: 100 MG, UID/QD
     Route: 048

REACTIONS (2)
  - INCORRECT DOSE ADMINISTERED [None]
  - HAEMOLYTIC URAEMIC SYNDROME [None]
